FAERS Safety Report 13737499 (Version 1)
Quarter: 2017Q3

REPORT INFORMATION
  Report Type: Spontaneous
  Country: JP (occurrence: JP)
  Receive Date: 20170710
  Receipt Date: 20170710
  Transmission Date: 20171127
  Serious: Yes (Hospitalization, Other)
  Sender: FDA-Public Use
  Company Number: JP-GLAXOSMITHKLINE-JP2017JPN102575

PATIENT
  Age: 49 Year
  Sex: Male

DRUGS (1)
  1. LAMICTAL [Suspect]
     Active Substance: LAMOTRIGINE
     Dosage: UNK
     Route: 048

REACTIONS (11)
  - Coating in mouth [Recovering/Resolving]
  - Conjunctival hyperaemia [Recovering/Resolving]
  - Hepatomegaly [Recovering/Resolving]
  - Pyrexia [Recovering/Resolving]
  - Eyelid oedema [Recovering/Resolving]
  - Rash erythematous [Recovered/Resolved]
  - Abnormal behaviour [Recovering/Resolving]
  - Oral pain [Recovering/Resolving]
  - Lymphadenopathy [Recovering/Resolving]
  - Drug reaction with eosinophilia and systemic symptoms [Recovering/Resolving]
  - Eye discharge [Recovering/Resolving]
